FAERS Safety Report 13703278 (Version 1)
Quarter: 2017Q2

REPORT INFORMATION
  Report Type: Spontaneous
  Country: US (occurrence: US)
  Receive Date: 20170629
  Receipt Date: 20170629
  Transmission Date: 20170830
  Serious: No
  Sender: FDA-Public Use
  Company Number: US-TAKEDA-2017TUS014068

PATIENT
  Sex: Female
  Weight: 68.03 kg

DRUGS (2)
  1. DEXILANT [Suspect]
     Active Substance: DEXLANSOPRAZOLE
     Indication: GASTROOESOPHAGEAL REFLUX DISEASE
     Dosage: 30 MG, QD
     Route: 048
     Dates: start: 20160613, end: 20170613
  2. DEXILANT [Suspect]
     Active Substance: DEXLANSOPRAZOLE
     Indication: HIATUS HERNIA
     Dosage: 30 MG, QD
     Route: 048
     Dates: start: 20170614

REACTIONS (2)
  - Incorrect drug administration duration [Unknown]
  - Nausea [Not Recovered/Not Resolved]
